FAERS Safety Report 5810891-5 (Version None)
Quarter: 2008Q3

REPORT INFORMATION
  Report Type: 
  Country: None (occurrence: None)
  Receive Date: 20080716
  Receipt Date: 20080703
  Transmission Date: 20090109
  Serious: Yes (Hospitalization)
  Sender: FDA-Public Use
  Company Number: PHHY2008RU10276

PATIENT
  Age: 52 Year
  Sex: Female

DRUGS (3)
  1. ZOLEDRONIC ACID [Suspect]
     Indication: OSTEOPOROSIS
     Dosage: UNK
     Dates: start: 20080526
  2. CELEBREX [Concomitant]
  3. SIRDALUD [Concomitant]

REACTIONS (3)
  - OEDEMA PERIPHERAL [None]
  - PYELONEPHRITIS CHRONIC [None]
  - PYREXIA [None]
